FAERS Safety Report 9664691 (Version 1)
Quarter: 2013Q4

REPORT INFORMATION
  Report Type: Spontaneous
  Country: JP (occurrence: None)
  Receive Date: 20131031
  Receipt Date: 20131031
  Transmission Date: 20140711
  Serious: Yes (Other)
  Sender: FDA-Public Use
  Company Number: AYM-2013-12235

PATIENT
  Age: 50 Year
  Sex: Female

DRUGS (1)
  1. CHOREAZINE [Suspect]
     Indication: HUNTINGTON^S DISEASE
     Route: 048

REACTIONS (1)
  - Choking [None]
